FAERS Safety Report 13868237 (Version 2)
Quarter: 2017Q3

REPORT INFORMATION
  Report Type: Spontaneous
  Country: US (occurrence: US)
  Receive Date: 20170815
  Receipt Date: 20170901
  Transmission Date: 20171127
  Serious: Yes (Other)
  Sender: FDA-Public Use
  Company Number: US-BIOGEN-2017BI00445850

PATIENT
  Sex: Female

DRUGS (1)
  1. TYSABRI [Suspect]
     Active Substance: NATALIZUMAB
     Indication: MULTIPLE SCLEROSIS
     Route: 065
     Dates: start: 20151201

REACTIONS (7)
  - Crohn^s disease [Unknown]
  - Fatigue [Unknown]
  - Hypoaesthesia [Unknown]
  - Cardiac failure congestive [Unknown]
  - Muscle spasms [Unknown]
  - Drug dose omission [Unknown]
  - Cardiovascular symptom [Unknown]
